FAERS Safety Report 9601898 (Version 2)
Quarter: 2013Q4

REPORT INFORMATION
  Report Type: Spontaneous
  Country: US (occurrence: US)
  Receive Date: 20131007
  Receipt Date: 20131122
  Transmission Date: 20140711
  Serious: Yes (Other)
  Sender: FDA-Public Use
  Company Number: US-JNJFOC-20131001094

PATIENT
  Sex: Female

DRUGS (6)
  1. STELARA [Suspect]
     Indication: PSORIASIS
     Route: 058
  2. ADDERALL [Concomitant]
     Indication: ATTENTION DEFICIT/HYPERACTIVITY DISORDER
     Route: 065
     Dates: start: 1993, end: 2013
  3. LEXAPRO [Concomitant]
     Indication: ATTENTION DEFICIT/HYPERACTIVITY DISORDER
     Route: 065
     Dates: start: 1993, end: 2013
  4. LEXAPRO [Concomitant]
     Indication: DEPRESSION
     Route: 065
     Dates: start: 1993, end: 2013
  5. WELLBATRIN [Concomitant]
     Indication: DEPRESSION
     Route: 065
     Dates: start: 2010, end: 2013
  6. NORCO [Concomitant]
     Indication: PAIN
     Dosage: 75/325 PRN
     Route: 065
     Dates: start: 201309, end: 201311

REACTIONS (1)
  - Knee arthroplasty [Unknown]
